FAERS Safety Report 5786095-1 (Version None)
Quarter: 2008Q2

REPORT INFORMATION
  Report Type: 
  Country: None (occurrence: None)
  Receive Date: 20080624
  Receipt Date: 20080613
  Transmission Date: 20081010
  Serious: Yes (Other)
  Sender: FDA-Public Use
  Company Number: US-ROCHE-501914

PATIENT
  Sex: Male
  Weight: 65.3 kg

DRUGS (8)
  1. ACCUTANE [Suspect]
     Indication: ACNE
     Route: 048
     Dates: start: 20001101
  2. ACCUTANE [Suspect]
     Dosage: THE PATIENT WAS DISPENSED 30 CAPSULES ON 19 JAN 2001 AND 10 CAPSULES ON 22 FEB 2001
     Route: 048
     Dates: start: 20010119, end: 20010226
  3. ACCUTANE [Suspect]
     Dosage: THE PATIENT WAS DISPENSED 60 CAPULES ON 27 FEB 2001
     Route: 048
     Dates: start: 20010227, end: 20010301
  4. ACCUTANE [Suspect]
     Dosage: THE PATIENT WAS DISPENSED 30 CAPSULES ON 17 APR 2001
     Route: 048
     Dates: start: 20010417, end: 20010501
  5. ACCUTANE [Suspect]
     Route: 048
     Dates: start: 20011001
  6. ACCUTANE [Suspect]
     Dosage: THE PATIENT WAS DISPENSED 50 CAPSULES, 2 CAPS DAILY ALTERNATING WITH 1 CAPS THE NEXT DAY
     Route: 048
     Dates: start: 20011113, end: 20011201
  7. ACCUTANE [Suspect]
     Route: 048
     Dates: start: 20020401, end: 20020501
  8. ADVIL [Concomitant]
     Dosage: HE WAS TAKING ADVIL ONCE A MONTH.

REACTIONS (8)
  - ABDOMINAL PAIN [None]
  - CROHN'S DISEASE [None]
  - GASTRIC ULCER [None]
  - GASTRITIS [None]
  - INFLAMMATORY BOWEL DISEASE [None]
  - OESOPHAGITIS [None]
  - PANCREATITIS [None]
  - VISUAL DISTURBANCE [None]
